FAERS Safety Report 6066864-3 (Version None)
Quarter: 2009Q1

REPORT INFORMATION
  Report Type: 
  Country: None (occurrence: None)
  Receive Date: 20090205
  Receipt Date: 20080711
  Transmission Date: 20090719
  Serious: No
  Sender: FDA-Public Use
  Company Number: US-ABBOTT-08P-163-0462137-00

PATIENT
  Sex: Female
  Weight: 90.8 kg

DRUGS (15)
  1. ACETAMINOPHEN AND HYDROCODONE BITARTRATE [Suspect]
     Indication: PAIN
     Route: 048
     Dates: start: 20030101, end: 20030101
  2. ATORVASTATIN CALCIUM [Concomitant]
     Indication: BLOOD CHOLESTEROL INCREASED
     Route: 048
  3. DYAZIDE [Concomitant]
     Indication: BLOOD PRESSURE
     Dosage: 25/37.5 MG DAILY
     Route: 048
  4. ALENDRONATE SODIUM [Concomitant]
     Indication: OSTEOPOROSIS PROPHYLAXIS
     Route: 048
  5. MONTELUKAST SODIUM [Concomitant]
     Indication: HYPERSENSITIVITY
     Route: 048
  6. CETIRIZINE HYDROCHLORIDE [Concomitant]
     Indication: HYPERSENSITIVITY
     Route: 048
  7. OMEGA-3 TRIGLYCERIDES [Concomitant]
     Indication: ARTHRITIS
     Dosage: PATCH
     Route: 061
  8. ACETAMINOPHEN [Concomitant]
     Indication: ARTHRITIS
     Route: 048
  9. FLEXERIL [Concomitant]
     Indication: ARTHRITIS
     Route: 048
  10. OLOPATADINE HYDROCHLORIDE [Concomitant]
     Indication: HYPERSENSITIVITY
     Dosage: DROPS
     Route: 047
  11. RHINARIS [Concomitant]
     Indication: HYPERSENSITIVITY
     Route: 047
  12. VIGRAN [Concomitant]
     Indication: DRUG USE FOR UNKNOWN INDICATION
     Route: 048
  13. ESSENTIAL WOMEN 50 PLUS [Concomitant]
     Indication: DRUG USE FOR UNKNOWN INDICATION
     Route: 048
  14. CALCIUM CITRATE W/VITAMIN D NOS [Concomitant]
     Indication: DRUG USE FOR UNKNOWN INDICATION
     Route: 048
  15. TRIPLE FLEX [Concomitant]
     Indication: DRUG USE FOR UNKNOWN INDICATION
     Route: 048

REACTIONS (2)
  - MALAISE [None]
  - NAUSEA [None]
